FAERS Safety Report 9122434 (Version 1)
Quarter: 2013Q1

REPORT INFORMATION
  Report Type: Spontaneous
  Country: FR (occurrence: FR)
  Receive Date: 20130227
  Receipt Date: 20130227
  Transmission Date: 20140127
  Serious: Yes (Other)
  Sender: FDA-Public Use
  Company Number: FR-PFIZER INC-2013065972

PATIENT
  Age: 59 Year
  Sex: Male

DRUGS (8)
  1. SOLU-MEDROL [Suspect]
     Indication: PREMEDICATION
     Dosage: 60 MG TWICE EVERY 15 DAYS
     Route: 042
     Dates: start: 201202, end: 20130103
  2. EPIVIR [Concomitant]
  3. ISENTRESS [Concomitant]
  4. REYATAZ [Concomitant]
  5. ELISOR [Concomitant]
  6. RAMIPRIL [Concomitant]
  7. ZOPHREN [Concomitant]
     Indication: PREMEDICATION
  8. GEMCITABINE [Concomitant]
     Indication: CHOLANGIOCARCINOMA
     Dosage: UNK
     Dates: start: 201202

REACTIONS (10)
  - Rash maculo-papular [Recovered/Resolved]
  - Pruritus [Recovered/Resolved]
  - Hypothermia [Unknown]
  - Thrombocytopenia [Unknown]
  - Erythema [Unknown]
  - Dyspnoea [Unknown]
  - Hyperhidrosis [Unknown]
  - Nausea [Unknown]
  - Vomiting [Unknown]
  - Erythema [Unknown]
